FAERS Safety Report 23992706 (Version 1)
Quarter: 2024Q2

REPORT INFORMATION
  Report Type: Spontaneous
  Country: US (occurrence: US)
  Receive Date: 20240620
  Receipt Date: 20240620
  Transmission Date: 20240715
  Serious: No
  Sender: FDA-Public Use
  Company Number: US-IBSA PHARMA INC.-2024IBS000041

PATIENT

DRUGS (1)
  1. LIDOCAINE [Suspect]
     Active Substance: LIDOCAINE
     Indication: Pain
     Dosage: 5 PERCENT, QD
     Route: 061
     Dates: start: 202401

REACTIONS (2)
  - Drug ineffective [Unknown]
  - Product physical issue [Unknown]
